FAERS Safety Report 5526874-9 (Version None)
Quarter: 2007Q4

REPORT INFORMATION
  Report Type: 
  Country: None (occurrence: None)
  Receive Date: 20071127
  Receipt Date: 20071122
  Transmission Date: 20080405
  Serious: Yes (Other)
  Sender: FDA-Public Use
  Company Number: PHNU2007DE03894

PATIENT
  Sex: Female

DRUGS (9)
  1. ZOMETA [Suspect]
     Indication: MULTIPLE MYELOMA
     Dosage: 4 MG, QMO
     Route: 042
     Dates: start: 20070401
  2. MCP [Concomitant]
     Route: 048
  3. HALOPERIDOL [Concomitant]
     Route: 048
  4. FORTECORTIN [Concomitant]
     Dosage: 4 MG, QD
  5. OMEPRAZOLE [Concomitant]
     Dosage: 20 MG, QD
  6. AMITRIPTYLINE HCL [Concomitant]
     Dosage: 10 MG, QD
  7. AMITRIPTYLINE HCL [Concomitant]
     Dosage: 25 MG, QD
  8. TAVOR [Concomitant]
     Dosage: 1 MG, QD
  9. OXAZEPAM [Concomitant]

REACTIONS (1)
  - OSTEONECROSIS [None]
